FAERS Safety Report 13634749 (Version 1)
Quarter: 2017Q2

REPORT INFORMATION
  Report Type: Spontaneous
  Country: US (occurrence: US)
  Receive Date: 20170531
  Receipt Date: 20170531
  Transmission Date: 20170830
  Serious: No
  Sender: FDA-Public Use
  Company Number: US-ASTELLAS-1651865

PATIENT
  Sex: Female

DRUGS (5)
  1. TARCEVA [Suspect]
     Active Substance: ERLOTINIB HYDROCHLORIDE
     Indication: MALIGNANT RESPIRATORY TRACT NEOPLASM
     Route: 048
     Dates: start: 20151006
  2. RM-10 [Concomitant]
  3. ACONITUM NAPELLUS [Concomitant]
     Active Substance: ACONITUM NAPELLUS\HOMEOPATHICS
  4. TARCEVA [Suspect]
     Active Substance: ERLOTINIB HYDROCHLORIDE
     Indication: LUNG NEOPLASM MALIGNANT
     Route: 048
     Dates: start: 20160109
  5. CHROMIUM PICOLINATE [Concomitant]
     Active Substance: CHROMIUM PICOLINATE

REACTIONS (8)
  - Diarrhoea [Unknown]
  - Muscle spasms [Unknown]
  - Dry skin [Unknown]
  - Neuropathy peripheral [Unknown]
  - Pruritus [Unknown]
  - Rash [Unknown]
  - Skin fissures [Unknown]
  - Paraesthesia [Unknown]
